FAERS Safety Report 9896196 (Version 2)
Quarter: 2014Q1

REPORT INFORMATION
  Report Type: Spontaneous
  Country: US (occurrence: US)
  Receive Date: 20140213
  Receipt Date: 20140213
  Transmission Date: 20141002
  Serious: No
  Sender: FDA-Public Use
  Company Number: US-BRISTOL-MYERS SQUIBB COMPANY-17325051

PATIENT
  Age: 64 Year
  Sex: Female

DRUGS (12)
  1. ORENCIA FOR INJ 250 MG/VIAL [Suspect]
     Indication: RHEUMATOID ARTHRITIS
     Dosage: 250MG RECONSTITUTED TO 750MG? ALSO ON 16OCT12?INTERUPTED ON 20-JAN-2013, UNTIL 15-MAR-2013
     Route: 042
     Dates: start: 20120628
  2. METHOTREXATE SODIUM INJ [Suspect]
     Dosage: FORMULATION-METHOTREXATE SODIUM 25MG/ML INJ SOL
     Route: 058
     Dates: start: 20091125
  3. BUSPIRONE HCL TABS 30 MG [Concomitant]
     Route: 048
     Dates: start: 20100512
  4. BETAMETHASONE + CLOTRIMAZOLE [Concomitant]
     Dosage: FORMULATION-BETAMETHASONE + CLOTRIMAZOLE (1-0.05%)?APPLY SPARINGLY TO AFFECTED AREA
     Dates: start: 20121004
  5. FLOVENT [Concomitant]
     Dosage: FORMULATION-FLOVENT 110MCG/ACT INHALATION AEROSOL?1DF= 1 PUFF
     Route: 048
     Dates: start: 20130123
  6. LANSOPRAZOLE [Concomitant]
     Dosage: FORMULATION-LANSOPRAZOLE 30MG CAPS DELAYED RELEASE?1DF= 1CAP
     Route: 048
     Dates: start: 20091022
  7. LEVOCETIRIZINE [Concomitant]
     Dosage: TABS?FORMULATION-LEVOCETIRIZINE DIHYDROCHLORIDE
     Route: 048
     Dates: start: 20121101
  8. NASONEX [Concomitant]
     Dosage: FORMULATION-NASONEX 50MCG/ ACT NASAL SUSPENSION?1DF= 1TO 2 SPRAYS
     Route: 045
     Dates: start: 20130123
  9. OXYCODONE HCL + ACETAMINOPHEN [Concomitant]
     Indication: PAIN
     Dosage: 1DF=5-325MG?TAB
     Route: 048
  10. PROAIR HFA [Concomitant]
     Dosage: FORMULATION-PROAIR HFA 108MCG/ACT INHALATION?AEROSOL SOLN?1DF-1 OR TWO PUFFS,Q6H
     Route: 048
     Dates: start: 20130125
  11. STRATTERA [Concomitant]
     Dosage: CAPS
     Route: 048
     Dates: start: 20100211
  12. TRAZODONE HCL TABS 300 MG [Concomitant]
     Route: 048
     Dates: start: 20100512

REACTIONS (1)
  - Bronchitis [Unknown]
